FAERS Safety Report 17201700 (Version 1)
Quarter: 2019Q4

REPORT INFORMATION
  Report Type: Spontaneous
  Country: US (occurrence: US)
  Receive Date: 20191203
  Receipt Date: 20191203
  Transmission Date: 20200122
  Serious: Yes (Hospitalization)
  Sender: FDA-Public Use
  Company Number: None

PATIENT
  Age: 44 Year
  Sex: Female
  Weight: 101.6 kg

DRUGS (2)
  1. VANCOMYCIN 5MG HOSPIRA [Suspect]
     Active Substance: VANCOMYCIN
     Indication: ALVEOLAR OSTEITIS
     Route: 042
     Dates: start: 20191016, end: 20191115
  2. VANCOMYCIN 5MG HOSPIRA [Suspect]
     Active Substance: VANCOMYCIN
     Indication: OSTEOMYELITIS
     Route: 042
     Dates: start: 20191016, end: 20191115

REACTIONS (1)
  - Toxicity to various agents [None]

NARRATIVE: CASE EVENT DATE: 20191115
